FAERS Safety Report 4433556-3 (Version None)
Quarter: 2004Q3

REPORT INFORMATION
  Report Type: 
  Country: None (occurrence: None)
  Receive Date: 20040824
  Receipt Date: 20040810
  Transmission Date: 20050211
  Serious: Yes (Hospitalization)
  Sender: FDA-Public Use
  Company Number: 2002-FF-00535FF

PATIENT
  Age: 33 Year
  Sex: Male

DRUGS (4)
  1. VIRAMUNE [Suspect]
     Indication: HIV INFECTION
     Dosage: ONE UNIT DOSE TWICE DAILY (MG,1 IN 12 HR), PO
     Route: 048
     Dates: start: 20010305
  2. COMBIVIR [Suspect]
     Indication: HIV INFECTION
     Dosage: (1 IN 12 HR), PO
     Route: 048
     Dates: start: 20010305
  3. VIRAFERONPEG [Suspect]
     Indication: HEPATITIS C
     Dosage: 10X6 U/2ML (6 U), SC
     Route: 058
     Dates: start: 20011126, end: 20020828
  4. REBETOL [Suspect]
     Indication: HEPATITIS C
     Dates: start: 20011126, end: 20020828

REACTIONS (2)
  - DEEP VEIN THROMBOSIS [None]
  - PULMONARY EMBOLISM [None]
